FAERS Safety Report 24684652 (Version 1)
Quarter: 2024Q4

REPORT INFORMATION
  Report Type: Spontaneous
  Country: KR (occurrence: KR)
  Receive Date: 20241202
  Receipt Date: 20241202
  Transmission Date: 20250114
  Serious: Yes (Hospitalization, Other)
  Sender: ALKEM
  Company Number: KR-ALKEM LABORATORIES LIMITED-KR-ALKEM-2024-15667

PATIENT
  Age: 40 Year
  Sex: Male

DRUGS (15)
  1. ISONIAZID [Suspect]
     Active Substance: ISONIAZID
     Indication: Pulmonary tuberculosis
     Dosage: 300 MILLIGRAM
     Route: 065
  2. ISONIAZID [Suspect]
     Active Substance: ISONIAZID
     Dosage: 300 MILLIGRAM (RECHALLENGE DOSE) (1 WEEK LATER)
     Route: 065
  3. AMLODIPINE [Concomitant]
     Active Substance: AMLODIPINE BESYLATE
     Indication: Hypertension
     Dosage: 10 MILLIGRAM
     Route: 065
  4. CARVEDILOL [Concomitant]
     Active Substance: CARVEDILOL
     Indication: Hypertension
     Dosage: 50 MILLIGRAM
     Route: 065
  5. Darbepoietin alfa [Concomitant]
     Indication: Product used for unknown indication
     Dosage: 40 MICROGRAM, ONCE WEEKLY
     Route: 058
  6. ETHAMBUTOL [Concomitant]
     Active Substance: ETHAMBUTOL HYDROCHLORIDE
     Indication: Pulmonary tuberculosis
     Dosage: 1200 MILLIGRAM (EVERY OTHER DAY THREE TIMES A WEEK)
     Route: 065
  7. FERROUS SULFATE [Concomitant]
     Active Substance: FERROUS SULFATE
     Indication: Product used for unknown indication
     Dosage: 256 MILLIGRAM
     Route: 065
  8. PANTOPRAZOLE SODIUM [Concomitant]
     Active Substance: PANTOPRAZOLE SODIUM
     Indication: Product used for unknown indication
     Dosage: 20 MILLIGRAM, QD
     Route: 065
  9. PYRIDOXINE [Concomitant]
     Active Substance: PYRIDOXINE
     Indication: Pulmonary tuberculosis
     Dosage: 50 MILLIGRAM, QD
     Route: 065
  10. PREDNISOLONE [Concomitant]
     Active Substance: PREDNISOLONE
     Indication: Immunosuppressant drug therapy
     Dosage: 15 MILLIGRAM
     Route: 065
  11. PYRAZINAMIDE [Concomitant]
     Active Substance: PYRAZINAMIDE
     Indication: Pulmonary tuberculosis
     Dosage: 1500 MILLIGRAM ((EVERY OTHER DAY THREE TIMES A WEEK))
     Route: 065
  12. RIFAMPIN [Concomitant]
     Active Substance: RIFAMPIN
     Indication: Pulmonary tuberculosis
     Dosage: 600 MILLIGRAM
     Route: 065
  13. SUCRALFATE [Concomitant]
     Active Substance: SUCRALFATE
     Indication: Product used for unknown indication
     Dosage: 1000 MILLIGRAM, TID
     Route: 065
  14. TACROLIMUS [Concomitant]
     Active Substance: TACROLIMUS
     Indication: Immunosuppressant drug therapy
     Dosage: 4 MILLIGRAM
     Route: 065
  15. VALSARTAN [Concomitant]
     Active Substance: VALSARTAN
     Indication: Hypertension
     Dosage: 80 MILLIGRAM
     Route: 065

REACTIONS (3)
  - Pancreatitis acute [Recovered/Resolved]
  - Aneurysm [Recovered/Resolved]
  - Pancreatic pseudocyst [Recovered/Resolved]
